FAERS Safety Report 6885643-8 (Version None)
Quarter: 2010Q3

REPORT INFORMATION
  Report Type: 
  Country: None (occurrence: None)
  Receive Date: 20100729
  Receipt Date: 20080907
  Transmission Date: 20110219
  Serious: No
  Sender: FDA-Public Use
  Company Number: US-PFIZER INC-2008074854

PATIENT
  Sex: Male
  Weight: 107 kg

DRUGS (6)
  1. CELEBREX [Suspect]
     Indication: ARTHRALGIA
     Dates: start: 20080801
  2. AVAPRO [Concomitant]
  3. VITAMIN B6 [Concomitant]
  4. VITAMIN B-12 [Concomitant]
  5. LECITHIN [Concomitant]
  6. ALL OTHER THERAPEUTIC PRODUCTS [Concomitant]

REACTIONS (5)
  - DIZZINESS [None]
  - HEADACHE [None]
  - NAUSEA [None]
  - PAIN [None]
  - VOMITING [None]
